FAERS Safety Report 22760690 (Version 3)
Quarter: 2023Q4

REPORT INFORMATION
  Report Type: Spontaneous
  Country: JP (occurrence: JP)
  Receive Date: 20230728
  Receipt Date: 20231211
  Transmission Date: 20240110
  Serious: Yes (Other)
  Sender: FDA-Public Use
  Company Number: JP-MSD-2307JPN002913J

PATIENT
  Age: 70 Year
  Sex: Male

DRUGS (3)
  1. KEYTRUDA [Suspect]
     Active Substance: PEMBROLIZUMAB
     Indication: Keratinising squamous cell carcinoma of nasopharynx
     Dosage: UNK
     Route: 041
     Dates: start: 20210304
  2. FLUOROURACIL [Suspect]
     Active Substance: FLUOROURACIL
     Indication: Keratinising squamous cell carcinoma of nasopharynx
     Dosage: UNK
     Route: 065
     Dates: start: 20210304
  3. CISPLATIN [Suspect]
     Active Substance: CISPLATIN
     Indication: Keratinising squamous cell carcinoma of nasopharynx
     Dosage: UNK
     Route: 065
     Dates: start: 20210304

REACTIONS (3)
  - Deafness neurosensory [Unknown]
  - Otitis media [Unknown]
  - Malaise [Unknown]
